FAERS Safety Report 15864554 (Version 1)
Quarter: 2019Q1

REPORT INFORMATION
  Report Type: Other
  Country: ES (occurrence: ES)
  Receive Date: 20190124
  Receipt Date: 20190124
  Transmission Date: 20190417
  Serious: Yes (Life-Threatening, Hospitalization)
  Sender: FDA-Public Use
  Company Number: ES-SERVIER-S19000359

PATIENT

DRUGS (8)
  1. ONCASPAR [Suspect]
     Active Substance: PEGASPARGASE
     Indication: ACUTE LYMPHOCYTIC LEUKAEMIA
     Dosage: 750 U/ML
     Route: 030
     Dates: start: 20171128, end: 20171128
  2. SEPTRIN PAEDIATRIC [Concomitant]
     Active Substance: SULFAMETHOXAZOLE\TRIMETHOPRIM
     Indication: OPPORTUNISTIC INFECTION PROPHYLAXIS
     Dosage: 5.5 ML
     Route: 048
     Dates: start: 20171025
  3. TN UNSPECIFIED [Concomitant]
     Active Substance: TROLNITRATE
     Indication: THROMBOSIS PROPHYLAXIS
     Dosage: 10 MG
     Route: 058
     Dates: start: 20171028
  4. ZOVIRAX [Concomitant]
     Active Substance: ACYCLOVIR
     Indication: OPPORTUNISTIC INFECTION PROPHYLAXIS
     Dosage: 2.3 ML
     Route: 048
     Dates: start: 20171025
  5. TN UNSPECIFIED [Concomitant]
     Active Substance: TROLNITRATE
     Indication: PROPHYLAXIS AGAINST GASTROINTESTINAL ULCER
     Dosage: 18 MG
     Route: 042
     Dates: start: 20171025
  6. TN UNSPECIFIED [Concomitant]
     Active Substance: TROLNITRATE
     Indication: ACUTE LYMPHOCYTIC LEUKAEMIA
     Dosage: 1.1 MG
     Route: 042
     Dates: start: 20171115, end: 20171115
  7. TN UNSPECIFIED [Concomitant]
     Active Substance: TROLNITRATE
     Indication: ACUTE LYMPHOCYTIC LEUKAEMIA
     Dosage: 23 MG
     Route: 042
     Dates: start: 20171115, end: 20171115
  8. TN UNSPECIFIED [Concomitant]
     Active Substance: TROLNITRATE
     Indication: OPPORTUNISTIC INFECTION PROPHYLAXIS
     Dosage: 18 MG
     Route: 042
     Dates: start: 20171101, end: 20171122

REACTIONS (3)
  - Pruritus [Recovered/Resolved]
  - Abdominal pain [Recovered/Resolved]
  - Angioedema [Recovered/Resolved]

NARRATIVE: CASE EVENT DATE: 20171128
